FAERS Safety Report 8080530-4 (Version None)
Quarter: 2012Q1

REPORT INFORMATION
  Report Type: 
  Country: None (occurrence: None)
  Receive Date: 20120130
  Receipt Date: 20120119
  Transmission Date: 20120608
  Serious: Yes (Congenital Anomaly)
  Sender: FDA-Public Use
  Company Number: US-UCBSA-8049488

PATIENT
  Sex: Female
  Weight: 3.373 kg

DRUGS (3)
  1. KEPPRA [Suspect]
     Indication: EPILEPSY
     Route: 064
     Dates: end: 20081223
  2. MULTI-VITAMINS [Concomitant]
     Indication: PREGNANCY
     Dosage: DAILY
     Route: 064
  3. FOLIC ACID [Concomitant]
     Indication: PREGNANCY
     Route: 064

REACTIONS (4)
  - DEVELOPMENTAL DELAY [None]
  - FOETAL EXPOSURE DURING PREGNANCY [None]
  - HYPOTONIA [None]
  - ANKYLOGLOSSIA CONGENITAL [None]
